FAERS Safety Report 13413916 (Version 3)
Quarter: 2019Q3

REPORT INFORMATION
  Report Type: Spontaneous
  Country: US (occurrence: US)
  Receive Date: 20170406
  Receipt Date: 20190909
  Transmission Date: 20191004
  Serious: No
  Sender: FDA-Public Use
  Company Number: US-JNJFOC-20170313721

PATIENT
  Sex: Male

DRUGS (8)
  1. RISPERIDONE. [Suspect]
     Active Substance: RISPERIDONE
     Indication: PRODUCT USED FOR UNKNOWN INDICATION
     Dosage: 0.5 MG AND 0.25 MG
     Route: 048
     Dates: start: 20050421
  2. RISPERIDONE. [Suspect]
     Active Substance: RISPERIDONE
     Dosage: 0.5 MG AND 0.25 MG
     Route: 048
     Dates: start: 20091005, end: 20091207
  3. RISPERIDONE. [Suspect]
     Active Substance: RISPERIDONE
     Dosage: 0.5 MG AND 0.25 MG
     Route: 048
     Dates: start: 20080728, end: 20090630
  4. RISPERDAL [Suspect]
     Active Substance: RISPERIDONE
     Indication: PRODUCT USED FOR UNKNOWN INDICATION
     Route: 048
     Dates: start: 2002
  5. RISPERDAL [Suspect]
     Active Substance: RISPERIDONE
     Route: 048
     Dates: start: 20050421, end: 20050611
  6. RISPERDAL [Suspect]
     Active Substance: RISPERIDONE
     Dosage: 0.5 MG AND 0.25 MG
     Route: 048
     Dates: end: 20091207
  7. RISPERDAL [Suspect]
     Active Substance: RISPERIDONE
     Dosage: 0.5 MG AND 0.25 MG
     Route: 048
     Dates: start: 20060718, end: 20080602
  8. RISPERDAL [Suspect]
     Active Substance: RISPERIDONE
     Dosage: 0.5 MG AND 0.25 MG
     Route: 048
     Dates: start: 20060129, end: 20060309

REACTIONS (2)
  - Gynaecomastia [Unknown]
  - Emotional distress [Unknown]
